FAERS Safety Report 5341529-1 (Version None)
Quarter: 2007Q2

REPORT INFORMATION
  Report Type: 
  Country: None (occurrence: None)
  Receive Date: 20070530
  Receipt Date: 20070515
  Transmission Date: 20071010
  Serious: Yes (Other)
  Sender: FDA-Public Use
  Company Number: 430002M07FRA

PATIENT
  Age: 47 Year
  Sex: Female

DRUGS (2)
  1. NOVANTRONE [Suspect]
     Indication: MULTIPLE SCLEROSIS
     Dosage: 20 MG, 1 IN 1 CYCLE, INTRAVENOUS (NOT OTHERWISE SPECIFIED)
     Route: 042
     Dates: start: 19960801, end: 19970401
  2. IMURAN [Suspect]
     Dosage: 150 MG, DAYS, ORAL
     Route: 048
     Dates: start: 19970101

REACTIONS (1)
  - ACUTE MYELOID LEUKAEMIA [None]
